FAERS Safety Report 6580312-6 (Version None)
Quarter: 2010Q1

REPORT INFORMATION
  Report Type: 
  Country: None (occurrence: None)
  Receive Date: 20100203
  Receipt Date: 20100121
  Transmission Date: 20100710
  Serious: Yes (Other)
  Sender: FDA-Public Use
  Company Number: 2010S1000420

PATIENT
  Sex: Female

DRUGS (14)
  1. PHOSPHOSODA FLAVOR NOT SPECIFIED [Suspect]
     Indication: COLONOSCOPY
     Dosage: 90 ML;TOTAL;PO
     Route: 048
     Dates: start: 20071112
  2. NORVASC [Concomitant]
  3. ALLEGRA [Concomitant]
  4. AMITRIPTYLINE HCL [Concomitant]
  5. PROPOXYPHENE HCL [Concomitant]
  6. FLONASE [Concomitant]
  7. GABAPENTIN [Concomitant]
  8. NEXIUM [Concomitant]
  9. MIACALCIN [Concomitant]
  10. MECLIZINE [Concomitant]
  11. SIMVASTATIN [Concomitant]
  12. TRAMADOL HCL [Concomitant]
  13. VIT B12 [Concomitant]
  14. BABY ASPIRIN [Concomitant]

REACTIONS (1)
  - RENAL DISORDER [None]
